FAERS Safety Report 19110591 (Version 1)
Quarter: 2021Q2

REPORT INFORMATION
  Report Type: Spontaneous
  Country: CA (occurrence: CA)
  Receive Date: 20210409
  Receipt Date: 20210409
  Transmission Date: 20210717
  Serious: Yes (Hospitalization)
  Sender: FDA-Public Use
  Company Number: CA-ROCHE-2803926

PATIENT
  Age: 79 Year
  Sex: Male
  Weight: 69 kg

DRUGS (20)
  1. RITUXAN [Suspect]
     Active Substance: RITUXIMAB
     Indication: NON-HODGKIN^S LYMPHOMA
     Route: 065
  2. CYCLOPHOSPHAMIDE. [Suspect]
     Active Substance: CYCLOPHOSPHAMIDE
     Indication: NON-HODGKIN^S LYMPHOMA
     Route: 065
  3. EZETROL [Concomitant]
     Active Substance: EZETIMIBE
  4. NYSTATIN. [Concomitant]
     Active Substance: NYSTATIN
  5. FLOMAX [Concomitant]
     Active Substance: TAMSULOSIN HYDROCHLORIDE
  6. FRAGMIN [Concomitant]
     Active Substance: DALTEPARIN SODIUM
     Route: 042
  7. TYLENOL [Concomitant]
     Active Substance: ACETAMINOPHEN
  8. AVODART [Concomitant]
     Active Substance: DUTASTERIDE
  9. CRESTOR [Concomitant]
     Active Substance: ROSUVASTATIN CALCIUM
  10. PREDNISONE. [Suspect]
     Active Substance: PREDNISONE
     Indication: NON-HODGKIN^S LYMPHOMA
     Route: 065
  11. ASA [Concomitant]
     Active Substance: ASPIRIN
  12. LAX?A?DAY [Concomitant]
     Active Substance: POLYETHYLENE GLYCOL 3350
     Route: 048
  13. MONOCOR [Concomitant]
     Active Substance: BISOPROLOL FUMARATE
  14. NITRO [Concomitant]
     Active Substance: NITROGLYCERIN
  15. NORVASC [Concomitant]
     Active Substance: AMLODIPINE BESYLATE
  16. DOXORUBICIN HYDROCHLORIDE. [Suspect]
     Active Substance: DOXORUBICIN HYDROCHLORIDE
     Indication: NON-HODGKIN^S LYMPHOMA
     Route: 065
  17. GRASTOFIL [Concomitant]
     Active Substance: FILGRASTIM
     Route: 042
  18. PANTOLOC [Concomitant]
     Active Substance: PANTOPRAZOLE SODIUM
  19. STEMETIL [Concomitant]
     Active Substance: PROCHLORPERAZINE
  20. VINCRISTINE SULPHATE [Suspect]
     Active Substance: VINCRISTINE SULFATE
     Indication: NON-HODGKIN^S LYMPHOMA
     Route: 065

REACTIONS (3)
  - Hyperthermia [Unknown]
  - Neutropenia [Unknown]
  - Urinary tract infection [Unknown]
